FAERS Safety Report 25336190 (Version 1)
Quarter: 2025Q2

REPORT INFORMATION
  Report Type: Spontaneous
  Country: US (occurrence: US)
  Receive Date: 20250520
  Receipt Date: 20250520
  Transmission Date: 20250716
  Serious: No
  Sender: TAKEDA
  Company Number: US-TAKEDA-2025TUS045005

PATIENT
  Sex: Male

DRUGS (1)
  1. ENTYVIO [Suspect]
     Active Substance: VEDOLIZUMAB
     Indication: Crohn^s disease
     Dosage: UNK, Q6WEEKS
     Dates: start: 2023

REACTIONS (2)
  - Gastrointestinal pain [Not Recovered/Not Resolved]
  - Insomnia [Not Recovered/Not Resolved]
